FAERS Safety Report 15069393 (Version 12)
Quarter: 2019Q1

REPORT INFORMATION
  Report Type: Report from Study
  Country: US (occurrence: US)
  Receive Date: 20180626
  Receipt Date: 20190201
  Transmission Date: 20190417
  Serious: Yes (Hospitalization, Other)
  Sender: FDA-Public Use
  Company Number: US-ACTELION-A-NJ2018-172693

PATIENT
  Age: 43 Year
  Sex: Female
  Weight: 76.19 kg

DRUGS (4)
  1. ADCIRCA [Concomitant]
     Active Substance: TADALAFIL
  2. ORENITRAM [Concomitant]
     Active Substance: TREPROSTINIL
  3. OPSUMIT [Suspect]
     Active Substance: MACITENTAN
     Indication: PULMONARY ARTERIAL HYPERTENSION
     Dosage: 10 MG, QD
     Route: 048
  4. OXYGEN. [Concomitant]
     Active Substance: OXYGEN

REACTIONS (27)
  - Lung transplant [Unknown]
  - Full blood count decreased [Recovering/Resolving]
  - Dyspnoea [Unknown]
  - Red blood cell count abnormal [Unknown]
  - Decreased appetite [Not Recovered/Not Resolved]
  - Pneumonia [Recovering/Resolving]
  - Scleroderma [Unknown]
  - Neuralgia [Unknown]
  - Palpitations [Unknown]
  - Pain in extremity [Unknown]
  - Diarrhoea [Unknown]
  - Hypotension [Unknown]
  - Oxygen saturation decreased [Unknown]
  - Dyspnoea exertional [Unknown]
  - Heart rate increased [Unknown]
  - Secretion discharge [Unknown]
  - Product dose omission [Unknown]
  - Thyroid disorder [Unknown]
  - Muscle spasms [Unknown]
  - Nausea [Unknown]
  - Pulmonary arterial hypertension [Unknown]
  - Cough [Unknown]
  - Productive cough [Unknown]
  - Haemoglobin decreased [Recovering/Resolving]
  - Malaise [Unknown]
  - Feeling cold [Unknown]
  - Fatigue [Unknown]

NARRATIVE: CASE EVENT DATE: 20180606
